FAERS Safety Report 25029078 (Version 1)
Quarter: 2025Q1

REPORT INFORMATION
  Report Type: Spontaneous
  Country: US (occurrence: US)
  Receive Date: 20250303
  Receipt Date: 20250303
  Transmission Date: 20250409
  Serious: Yes (Other)
  Sender: ALEXION PHARMACEUTICALS
  Company Number: US-AstraZeneca-CH-00818037A

PATIENT

DRUGS (1)
  1. CRESTOR [Suspect]
     Active Substance: ROSUVASTATIN CALCIUM
     Route: 065

REACTIONS (7)
  - Product prescribing issue [Unknown]
  - Palpitations [Unknown]
  - Cardiac disorder [Unknown]
  - Malignant neoplasm progression [Unknown]
  - Product dose omission issue [Unknown]
  - Sensory processing sensitivity [Unknown]
  - Arterial injury [Unknown]
